FAERS Safety Report 10897549 (Version 1)
Quarter: 2015Q1

REPORT INFORMATION
  Report Type: Spontaneous
  Country: US (occurrence: None)
  Receive Date: 20150302
  Receipt Date: 20150302
  Transmission Date: 20150721
  Serious: No
  Sender: FDA-Public Use
  Company Number: None

PATIENT
  Age: 68 Year
  Sex: Male
  Weight: 88.45 kg

DRUGS (10)
  1. MULTI-VITAMIN/MINERAL [Concomitant]
  2. ORAL APPLIANCE [Concomitant]
  3. VITAMIN D3 [Concomitant]
     Active Substance: CHOLECALCIFEROL
  4. NATTOKINASE [Concomitant]
     Active Substance: NATTOKINASE
  5. MK-7 [Concomitant]
  6. UBIQUINOL [Concomitant]
  7. VITAMIN B12 [Concomitant]
     Active Substance: CYANOCOBALAMIN
  8. LECITHIN [Concomitant]
     Active Substance: LECITHIN
  9. FEOSOL (IRON) [Concomitant]
  10. TAMSULOSIN 0.4 MG [Suspect]
     Active Substance: TAMSULOSIN
     Indication: BENIGN PROSTATIC HYPERPLASIA
     Dosage: ONE CAPSULE PER DAY, ONCE DAILY, TAKEN BY MOUTH
     Route: 048
     Dates: start: 20140112, end: 20140612

REACTIONS (1)
  - Dyspnoea [None]

NARRATIVE: CASE EVENT DATE: 20140612
